FAERS Safety Report 6408985-9 (Version None)
Quarter: 2009Q4

REPORT INFORMATION
  Report Type: 
  Country: None (occurrence: None)
  Receive Date: 20091021
  Receipt Date: 20091009
  Transmission Date: 20100525
  Serious: Yes (Death)
  Sender: FDA-Public Use
  Company Number: JP-NAPPMUNDI-MAG-2009-0001070

PATIENT
  Sex: Female

DRUGS (13)
  1. OXYCODONE HCL [Suspect]
     Indication: CANCER PAIN
     Dosage: 100 MG, DAILY
     Route: 042
     Dates: start: 20090928, end: 20090929
  2. OXYCONTIN [Concomitant]
     Dosage: 60 MG, DAILY
     Route: 065
  3. NOVAMIN                            /00013301/ [Concomitant]
     Indication: NAUSEA
     Dosage: 15 MG, DAILY
     Route: 048
     Dates: start: 20090909, end: 20090928
  4. MAGMITT [Concomitant]
     Indication: CONSTIPATION
     Dosage: 1500 MG, DAILY
     Route: 048
     Dates: start: 20090923, end: 20090928
  5. LOXONIN                            /00890702/ [Concomitant]
     Indication: CANCER PAIN
     Dosage: 180 MG, DAILY
     Route: 048
     Dates: start: 20090909, end: 20090928
  6. PARIET [Concomitant]
     Indication: GASTROINTESTINAL DISORDER
     Dosage: 10 MG, DAILY
     Route: 048
     Dates: start: 20090909, end: 20090928
  7. LENDORMIN [Concomitant]
     Indication: INSOMNIA
     Dosage: .25 MG, DAILY
     Route: 048
     Dates: start: 20090923, end: 20090928
  8. GABAPEN [Concomitant]
     Indication: CANCER PAIN
     Dosage: 400 MG, DAILY
     Route: 048
     Dates: start: 20090927, end: 20090928
  9. VITAMEDIN [Concomitant]
     Indication: NUTRITIONAL SUPPORT
     Dosage: 1 DF, DAILY
     Route: 042
     Dates: start: 20090927, end: 20090929
  10. BFLUID [Concomitant]
     Indication: FLUID REPLACEMENT
     Dosage: 500 ML, DAILY
     Route: 042
     Dates: start: 20090927, end: 20090929
  11. LASIX [Concomitant]
     Indication: OEDEMA
     Dosage: 20 MG, DAILY
     Route: 042
     Dates: start: 20090927, end: 20090928
  12. CATLEP [Concomitant]
     Indication: CANCER PAIN
     Dosage: 2 UNK, 2 X TID
     Dates: start: 20090925, end: 20090928
  13. PRIMPERAN                          /00041901/ [Concomitant]
     Indication: VOMITING
     Dosage: UNK
     Route: 042
     Dates: start: 20090928, end: 20090929

REACTIONS (1)
  - CARDIO-RESPIRATORY ARREST [None]
